FAERS Safety Report 12349241 (Version 2)
Quarter: 2016Q3

REPORT INFORMATION
  Report Type: Spontaneous
  Country: SE (occurrence: SE)
  Receive Date: 20160509
  Receipt Date: 20160715
  Transmission Date: 20161109
  Serious: Yes (Other)
  Sender: FDA-Public Use
  Company Number: SE-AMGEN-SWESP2016058706

PATIENT
  Age: 58 Year
  Sex: Male

DRUGS (2)
  1. METHOTREXATE SODIUM. [Suspect]
     Active Substance: METHOTREXATE SODIUM
     Indication: ANKYLOSING SPONDYLITIS
     Dosage: 6 TABLETS PER WEEK
     Route: 048
     Dates: start: 201310, end: 20160121
  2. ENBREL [Suspect]
     Active Substance: ETANERCEPT
     Indication: ANKYLOSING SPONDYLITIS
     Dosage: 50 MG, WEEKLY
     Route: 058
     Dates: start: 201310, end: 20160121

REACTIONS (7)
  - Computerised tomogram abnormal [Unknown]
  - Gastrointestinal mucocoele [Unknown]
  - Malignant melanoma [Not Recovered/Not Resolved]
  - Nodular melanoma [Not Recovered/Not Resolved]
  - Positron emission tomogram abnormal [Unknown]
  - Hamartoma [Unknown]
  - Biopsy lymph gland abnormal [Unknown]

NARRATIVE: CASE EVENT DATE: 201508
